FAERS Safety Report 7429155-1 (Version None)
Quarter: 2011Q2

REPORT INFORMATION
  Report Type: 
  Country: None (occurrence: None)
  Receive Date: 20110421
  Receipt Date: 20100203
  Transmission Date: 20111010
  Serious: No
  Sender: FDA-Public Use
  Company Number: US-BAYER-201013461NA

PATIENT
  Sex: Female

DRUGS (1)
  1. YAZ [Suspect]

REACTIONS (1)
  - GALLBLADDER DISORDER [None]
